FAERS Safety Report 4665547-1 (Version None)
Quarter: 2005Q2

REPORT INFORMATION
  Report Type: 
  Country: None (occurrence: None)
  Receive Date: 20050518
  Receipt Date: 20050518
  Transmission Date: 20051028
  Serious: Yes (Hospitalization)
  Sender: FDA-Public Use
  Company Number: None

PATIENT
  Age: 69 Year
  Sex: Male
  Weight: 86.4102 kg

DRUGS (17)
  1. ABILIFY [Suspect]
     Indication: POST-TRAUMATIC STRESS DISORDER
     Dosage: 10 MG  ONCE DAILY ORAL
     Route: 048
     Dates: start: 20050420, end: 20050421
  2. ASPIRIN [Concomitant]
  3. CARDIZEM [Concomitant]
  4. FOLIC ACID [Concomitant]
  5. VITAMIN E [Concomitant]
  6. VYTORIN [Concomitant]
  7. NITRO [Concomitant]
  8. GLUCOPHAGE [Concomitant]
  9. ELAVIL [Concomitant]
  10. NEURONTIN [Concomitant]
  11. MOBIC [Concomitant]
  12. TYLENOL (CAPLET) [Concomitant]
  13. ZANAFLEX [Concomitant]
  14. ULTRAM [Concomitant]
  15. ZOLOFT [Concomitant]
  16. ZANTAC [Concomitant]
  17. DULCOLAX [Concomitant]

REACTIONS (1)
  - CHEST PAIN [None]
